FAERS Safety Report 6283777-2 (Version None)
Quarter: 2009Q3

REPORT INFORMATION
  Report Type: 
  Country: None (occurrence: None)
  Receive Date: 20090724
  Receipt Date: 20090717
  Transmission Date: 20100115
  Serious: Yes (Disabling)
  Sender: FDA-Public Use
  Company Number: GB-ASTRAZENECA-2009SE05211

PATIENT
  Age: 44 Year
  Sex: Male

DRUGS (5)
  1. CRESTOR [Suspect]
     Indication: HYPERCHOLESTEROLAEMIA
     Route: 048
     Dates: start: 20060101
  2. RAMIPRIL [Suspect]
     Route: 048
     Dates: start: 20060101
  3. ATENOLOL [Suspect]
     Indication: HYPERTENSION
     Route: 048
  4. EZETIMIBE [Suspect]
     Route: 048
  5. ZOTON [Suspect]
     Indication: GASTRIC PH DECREASED
     Route: 048
     Dates: start: 20060520

REACTIONS (1)
  - DEPRESSION [None]
